FAERS Safety Report 5215810-0 (Version None)
Quarter: 2007Q1

REPORT INFORMATION
  Report Type: 
  Country: None (occurrence: None)
  Receive Date: 20070123
  Receipt Date: 20070111
  Transmission Date: 20070707
  Serious: No
  Sender: FDA-Public Use
  Company Number: GB-JNJFOC-20070101530

PATIENT
  Age: 28 Year
  Sex: Female

DRUGS (7)
  1. IBUPROFEN [Suspect]
     Indication: DRUG USE FOR UNKNOWN INDICATION
     Dosage: TOOK SEVEN TO EIGHT TABLETS
     Route: 048
  2. PAROXETINE HYDROCHLORIDE [Suspect]
  3. PAROXETINE HYDROCHLORIDE [Suspect]
  4. PAROXETINE HYDROCHLORIDE [Suspect]
     Dosage: RESTARTED, DOSE UNKNOWN
  5. PAROXETINE HYDROCHLORIDE [Suspect]
     Indication: DEPRESSION
  6. SERTRALINE [Concomitant]
     Dosage: 50MG IN THE MORNING AND 200 MG ^NOETC ^
  7. SULPIRIDE [Concomitant]

REACTIONS (1)
  - INTENTIONAL OVERDOSE [None]
